FAERS Safety Report 11127151 (Version 2)
Quarter: 2015Q2

REPORT INFORMATION
  Report Type: Spontaneous
  Country: JP (occurrence: JP)
  Receive Date: 20150521
  Receipt Date: 20150630
  Transmission Date: 20150821
  Serious: Yes (Death, Hospitalization)
  Sender: FDA-Public Use
  Company Number: JP-ROCHE-1576563

PATIENT
  Age: 84 Year
  Sex: Female
  Weight: 46 kg

DRUGS (18)
  1. ROCEPHIN [Suspect]
     Active Substance: CEFTRIAXONE SODIUM
     Indication: PYELONEPHRITIS
     Route: 041
     Dates: start: 20150219, end: 20150220
  2. LANIRAPID [Suspect]
     Active Substance: METILDIGOXIN
     Indication: ATRIAL FIBRILLATION
     Dosage: DOSAGE IS UNCERTAIN.
     Route: 065
     Dates: start: 20150219, end: 20150228
  3. HERBESSER [Concomitant]
     Active Substance: DILTIAZEM HYDROCHLORIDE
     Dosage: DOSAGE IS UNCERTAIN.
     Route: 065
  4. ZADITEN [Concomitant]
     Active Substance: KETOTIFEN FUMARATE
     Dosage: DOSAGE IS UNCERTAIN.
     Route: 047
  5. NEXIUM [Concomitant]
     Active Substance: ESOMEPRAZOLE MAGNESIUM
     Dosage: DOSAGE IS UNCERTAIN.
     Route: 065
  6. MAGMITT [Concomitant]
     Active Substance: MAGNESIUM OXIDE
     Dosage: DOSAGE IS UNCERTAIN.
     Route: 065
  7. FLUMETHOLON [Concomitant]
     Active Substance: FLUOROMETHOLONE
     Dosage: DOSAGE IS UNCERTAIN.
     Route: 047
  8. WARFARIN [Concomitant]
     Active Substance: WARFARIN
     Dosage: DOSAGE IS UNCERTAIN.
     Route: 065
  9. GABAPEN [Concomitant]
     Active Substance: GABAPENTIN
     Dosage: DOSAGE IS UNCERTAIN.
     Route: 065
  10. MYSLEE [Concomitant]
     Active Substance: ZOLPIDEM TARTRATE
     Dosage: DOSAGE IS UNCERTAIN.
     Route: 065
  11. LYRICA [Concomitant]
     Active Substance: PREGABALIN
     Dosage: DOSAGE IS UNCERTAIN.
     Route: 065
  12. AMLODIPINE [Concomitant]
     Active Substance: AMLODIPINE BESYLATE
     Dosage: DOSAGE IS UNCERTAIN.
     Route: 065
  13. CELESTAMINE (JAPAN) [Concomitant]
     Dosage: DOSAGE IS UNCERTAIN.
     Route: 065
  14. LOXOMARIN [Concomitant]
     Active Substance: LOXOPROFEN
     Dosage: DOSAGE IS UNCERTAIN.
     Route: 065
  15. DIGOSIN [Suspect]
     Active Substance: DIGOXIN
     Indication: ATRIAL FIBRILLATION
     Dosage: DOSAGE IS UNCERTAIN.
     Route: 065
     Dates: start: 20150219, end: 20150228
  16. SOLDACTONE [Suspect]
     Active Substance: CANRENOATE POTASSIUM
     Indication: PRODUCT USED FOR UNKNOWN INDICATION
     Dosage: DOSAGE IS UNCERTAIN.
     Route: 065
     Dates: start: 20150219, end: 20150228
  17. XARELTO [Suspect]
     Active Substance: RIVAROXABAN
     Indication: ATRIAL FIBRILLATION
     Dosage: DOSAGE IS UNCERTAIN.
     Route: 048
     Dates: start: 20141210, end: 20150228
  18. ARTIST [Concomitant]
     Active Substance: CARVEDILOL
     Dosage: DOSAGE IS UNCERTAIN.
     Route: 065

REACTIONS (2)
  - Stevens-Johnson syndrome [Recovering/Resolving]
  - Septic shock [Fatal]

NARRATIVE: CASE EVENT DATE: 2015
